FAERS Safety Report 17233715 (Version 1)
Quarter: 2020Q1

REPORT INFORMATION
  Report Type: Spontaneous
  Country: US (occurrence: US)
  Receive Date: 20200105
  Receipt Date: 20200105
  Transmission Date: 20200409
  Serious: No
  Sender: FDA-Public Use
  Company Number: US-MTPC-MTDA2020-0038263

PATIENT

DRUGS (1)
  1. RADICAVA [Suspect]
     Active Substance: EDARAVONE
     Indication: PRODUCT USED FOR UNKNOWN INDICATION
     Dosage: 60 MG OVER 60 MIN, DAILY FOR 14 CONSECUTIVE DAYS FOLLOWED BY A 2-WEEK DRUG FREE PERIOD
     Route: 042

REACTIONS (2)
  - Inappropriate schedule of product administration [Unknown]
  - Mobility decreased [Unknown]
